FAERS Safety Report 26175843 (Version 1)
Quarter: 2025Q4

REPORT INFORMATION
  Report Type: Spontaneous
  Country: EU (occurrence: EU)
  Receive Date: 20251218
  Receipt Date: 20251218
  Transmission Date: 20260118
  Serious: Yes (Hospitalization)
  Sender: SANDOZ
  Company Number: EU-AstraZeneca-2024A134512

PATIENT
  Age: 73 Year
  Sex: Female
  Weight: 59 kg

DRUGS (30)
  1. CARBOPLATIN [Suspect]
     Active Substance: CARBOPLATIN
     Indication: Breast cancer
     Dosage: 5 AUC
     Route: 065
     Dates: start: 20240129, end: 20240412
  2. CISPLATIN [Suspect]
     Active Substance: CISPLATIN
     Indication: Breast cancer
     Dosage: 75 MILLIMOLE PER SQUARE METRE, Q3W, INJECTION
     Route: 065
  3. PEMETREXED [Suspect]
     Active Substance: PEMETREXED
     Indication: Non-small cell lung cancer metastatic
     Dosage: 500 MILLIGRAM/SQ. METER, Q3W, INJECTION
     Route: 065
     Dates: start: 20240129, end: 20240523
  4. PEMBROLIZUMAB [Suspect]
     Active Substance: PEMBROLIZUMAB
     Indication: Breast cancer
     Dosage: 200 MG, ONCE EVERY 3 WK
     Route: 065
     Dates: start: 20240129, end: 20240523
  5. ABSOLUT 3G [Concomitant]
     Indication: Pancytopenia
     Dosage: 30 MILLIGRAM, QD
     Route: 065
     Dates: start: 20240611, end: 20240611
  6. ABSOLUT 3G [Concomitant]
     Dosage: 30 MILLIGRAM, QD
     Route: 065
     Dates: start: 20240607, end: 20240607
  7. ABSOLUT 3G [Concomitant]
     Dosage: 50 MILLIGRAM, QD
     Route: 065
     Dates: start: 20240608, end: 20240610
  8. Am [Concomitant]
     Indication: Hypertension
     Dosage: 5 MG, QD
     Route: 065
     Dates: start: 2014
  9. Amlopin [Concomitant]
     Indication: Hypertension
     Dosage: 5 MG, QD
     Route: 065
     Dates: start: 2014
  10. Artificial tears [Concomitant]
     Indication: Hypercholesterolaemia
     Dosage: 1 FOUR TIMES A DAY
     Route: 065
     Dates: start: 2020
  11. BISOPROLOL [Concomitant]
     Active Substance: BISOPROLOL
     Indication: Hypertension
     Dosage: 7.5 MG, QD
     Route: 065
     Dates: start: 2014
  12. CO TRITACE [Concomitant]
     Indication: Atrial fibrillation
     Dosage: 5 MG, ONCE EVERY 12HR
     Route: 065
     Dates: start: 2014
  13. DEXAMETHASONE [Concomitant]
     Active Substance: DEXAMETHASONE
     Indication: Anticoagulant therapy
     Dosage: 16 ML {ASNECESSARY}, 16 MILLILITER, UNK, FREQUENCY: INT
     Route: 065
  14. EUTHYROX [Concomitant]
     Active Substance: LEVOTHYROXINE SODIUM
     Indication: Prophylaxis
     Dosage: 112 MCG DAILY
     Route: 065
     Dates: start: 20240126
  15. HUMAN RED BLOOD CELL [Concomitant]
     Active Substance: HUMAN RED BLOOD CELL
     Indication: Creatinine renal clearance decreased
     Dosage: O 2 ONCE/SINGLE ADMINISTRATION
     Route: 065
     Dates: start: 20240605, end: 20240605
  16. HUMAN RED BLOOD CELL [Concomitant]
     Active Substance: HUMAN RED BLOOD CELL
     Indication: Premedication
     Dosage: O 2 ONCE/SINGLE ADMINISTRATION
     Route: 065
     Dates: start: 20240606, end: 20240606
  17. HUMAN RED BLOOD CELL [Concomitant]
     Active Substance: HUMAN RED BLOOD CELL
     Indication: Anaemia
  18. HUMAN RED BLOOD CELL [Concomitant]
     Active Substance: HUMAN RED BLOOD CELL
     Indication: Anaemia
  19. HUMAN RED BLOOD CELL [Concomitant]
     Active Substance: HUMAN RED BLOOD CELL
     Indication: Hypothyroidism
  20. HUMAN RED BLOOD CELL [Concomitant]
     Active Substance: HUMAN RED BLOOD CELL
     Indication: Pancytopenia
  21. HUMAN RED BLOOD CELL [Concomitant]
     Active Substance: HUMAN RED BLOOD CELL
     Indication: Premedication
  22. HUMAN RED BLOOD CELL [Concomitant]
     Active Substance: HUMAN RED BLOOD CELL
     Indication: Urinary tract pain
  23. Irradiated platelet concentrate-leukocytes reduced [Concomitant]
     Indication: Pancytopenia
     Dosage: O 10 ONCE/SINGLE ADMINISTRATION
     Route: 065
     Dates: start: 20240605, end: 20240605
  24. DROTAVERINE HYDROCHLORIDE [Concomitant]
     Active Substance: DROTAVERINE HYDROCHLORIDE
     Indication: Atrial fibrillation
     Dosage: 40 MG, QD
     Route: 065
     Dates: start: 20240219
  25. ONDANSETRON [Concomitant]
     Active Substance: ONDANSETRON
     Indication: Prophylaxis
     Dosage: 8 MILLIGRAM, UNK, FREQUENCY: INT
     Route: 065
     Dates: start: 20240129
  26. ACETAMINOPHEN [Concomitant]
     Active Substance: ACETAMINOPHEN
     Indication: Pancytopenia
     Dosage: 500 MG, SINGLE
     Route: 065
     Dates: start: 20240609, end: 20240609
  27. PROPAFENONE HYDROCHLORIDE [Concomitant]
     Active Substance: PROPAFENONE HYDROCHLORIDE
     Indication: Hypertension
     Dosage: 300 MILLIGRAM, Q8H
     Route: 065
     Dates: start: 2023
  28. PRADAXA [Concomitant]
     Active Substance: DABIGATRAN ETEXILATE MESYLATE
     Indication: Embolism
     Dosage: 150 MG, QD
     Route: 065
     Dates: start: 2022
  29. ROSUVASTATIN [Concomitant]
     Active Substance: ROSUVASTATIN
     Indication: Hypercholesterolaemia
     Dosage: 10 MG, QD
     Route: 065
     Dates: start: 2014
  30. TRAZODONE HYDROCHLORIDE [Concomitant]
     Active Substance: TRAZODONE HYDROCHLORIDE
     Indication: Premedication
     Dosage: 75 MG, QD
     Route: 065
     Dates: start: 20240304

REACTIONS (1)
  - Interstitial lung disease [Recovered/Resolved]

NARRATIVE: CASE EVENT DATE: 20240607
